FAERS Safety Report 24825432 (Version 1)
Quarter: 2025Q1

REPORT INFORMATION
  Report Type: Spontaneous
  Country: US (occurrence: US)
  Receive Date: 20250109
  Receipt Date: 20250109
  Transmission Date: 20250408
  Serious: Yes (Other)
  Sender: JOHNSON AND JOHNSON
  Company Number: US-JNJFOC-20241284242

PATIENT
  Age: 44 Year
  Sex: Female
  Weight: 161.5 kg

DRUGS (9)
  1. OPSUMIT [Suspect]
     Active Substance: MACITENTAN
     Indication: Product used for unknown indication
     Route: 048
     Dates: end: 202410
  2. ORENITRAM [Suspect]
     Active Substance: TREPROSTINIL
     Indication: Pulmonary arterial hypertension
     Route: 048
     Dates: start: 20241001
  3. SPIRONOLACTONE [Concomitant]
     Active Substance: SPIRONOLACTONE
  4. DILTIAZEM [Concomitant]
     Active Substance: DILTIAZEM
  5. CAMILA [Concomitant]
     Active Substance: NORETHINDRONE
  6. LEVOTHYROXINE [Concomitant]
     Active Substance: LEVOTHYROXINE
  7. OXYGEN [Concomitant]
     Active Substance: OXYGEN
  8. BUMETANIDE [Concomitant]
     Active Substance: BUMETANIDE
  9. ALYQ [Concomitant]
     Active Substance: TADALAFIL

REACTIONS (4)
  - Ascites [Unknown]
  - Nausea [Unknown]
  - Palpitations [Not Recovered/Not Resolved]
  - Heavy menstrual bleeding [Unknown]

NARRATIVE: CASE EVENT DATE: 20240101
